FAERS Safety Report 17955295 (Version 1)
Quarter: 2020Q2

REPORT INFORMATION
  Report Type: Spontaneous
  Country: US (occurrence: US)
  Receive Date: 20200626
  Receipt Date: 20200626
  Transmission Date: 20200714
  Serious: Yes (Life-Threatening, Disabling, Other)
  Sender: FDA-Public Use
  Company Number: None

PATIENT
  Age: 30 Year
  Sex: Male
  Weight: 58.5 kg

DRUGS (5)
  1. TIZANIDINE. [Concomitant]
     Active Substance: TIZANIDINE
  2. SKELAXIN [Concomitant]
     Active Substance: METAXALONE
  3. NALTREXONE [Concomitant]
     Active Substance: NALTREXONE
  4. DULOXETINE HYDROCHLORIDE. [Suspect]
     Active Substance: DULOXETINE HYDROCHLORIDE
     Indication: FIBROMYALGIA
     Dosage: ?          QUANTITY:2 TABLET(S);?
     Route: 048
     Dates: start: 20170901, end: 20171227
  5. LYRICA [Concomitant]
     Active Substance: PREGABALIN

REACTIONS (9)
  - Suicidal ideation [None]
  - Memory impairment [None]
  - Paranoia [None]
  - Amnesia [None]
  - Crying [None]
  - Major depression [None]
  - Aggression [None]
  - Paraesthesia [None]
  - Withdrawal syndrome [None]

NARRATIVE: CASE EVENT DATE: 20171227
